FAERS Safety Report 4741520-X (Version None)
Quarter: 2005Q3

REPORT INFORMATION
  Report Type: 
  Country: None (occurrence: None)
  Receive Date: 20050808
  Receipt Date: 20050518
  Transmission Date: 20060218
  Serious: Yes (Hospitalization)
  Sender: FDA-Public Use
  Company Number: 2005FR-00202

PATIENT
  Age: 69 Year
  Sex: Male

DRUGS (6)
  1. ASPIRIN [Suspect]
     Indication: ATRIAL FIBRILLATION
     Dosage: 75 MG
     Route: 048
     Dates: end: 20050214
  2. SIMVASTATIN [Concomitant]
  3. ALBUTEROL SULFATE HFA [Concomitant]
  4. LACTULOSE [Concomitant]
  5. ZOPICLONE [Concomitant]
  6. DIGOXIN [Concomitant]

REACTIONS (1)
  - GASTROINTESTINAL CANCER METASTATIC [None]
